FAERS Safety Report 24181357 (Version 2)
Quarter: 2025Q1

REPORT INFORMATION
  Report Type: Report from Study
  Country: ZA (occurrence: ZA)
  Receive Date: 20240807
  Receipt Date: 20250327
  Transmission Date: 20250408
  Serious: Yes (Other)
  Sender: ABBVIE
  Company Number: ZA-ABBOTT-2024A-1385406

PATIENT
  Age: 42 Year
  Sex: Female

DRUGS (28)
  1. CREON [Suspect]
     Active Substance: PANCRELIPASE AMYLASE\PANCRELIPASE LIPASE\PANCRELIPASE PROTEASE
     Indication: Pancreatic failure
     Route: 048
  2. CREON [Suspect]
     Active Substance: PANCRELIPASE AMYLASE\PANCRELIPASE LIPASE\PANCRELIPASE PROTEASE
     Indication: Pancreatic failure
     Dosage: 300 MG TAKE ONE CAPSULE THREE TIMES A DAY CREON 25000
     Route: 048
  3. NALOXONE HYDROCHLORIDE\OXYCODONE HYDROCHLORIDE [Concomitant]
     Active Substance: NALOXONE HYDROCHLORIDE\OXYCODONE HYDROCHLORIDE
     Indication: Surgery
     Dosage: 20/10 MG TAKE TWO TABLETS TWICE A DAY
     Route: 048
  4. ESOMEPRAZOLE [Concomitant]
     Active Substance: ESOMEPRAZOLE
     Indication: Ulcer
     Dosage: 40 MG TAKE ONE TABLET IN THE MORNING
     Route: 048
  5. MOVICOL [Concomitant]
     Active Substance: POLYETHYLENE GLYCOL 3350\POTASSIUM CHLORIDE\SODIUM BICARBONATE\SODIUM CHLORIDE
     Indication: Product used for unknown indication
     Route: 048
  6. PREGABALIN [Concomitant]
     Active Substance: PREGABALIN
     Indication: Epilepsy
     Dosage: 75 MG TAKE ONE CAPSULE AT NIGHT
     Route: 048
  7. Exlov xr [Concomitant]
     Indication: Depression
     Dosage: 100 MG TAKE ONE TABLET DAILY
     Route: 048
  8. Adco Dol [Concomitant]
     Indication: Product used for unknown indication
     Route: 048
  9. Tramazac [Concomitant]
     Indication: Pain
     Dosage: 50 MG TAKE TWO CAPSULES FOUR TIMES A DAY
     Route: 048
  10. HYDROCORTISONE ACETATE [Concomitant]
     Active Substance: HYDROCORTISONE ACETATE
     Indication: Product used for unknown indication
     Route: 061
  11. Andolex c [Concomitant]
     Indication: Product used for unknown indication
     Route: 048
  12. Venteze [Concomitant]
     Indication: Bronchospasm
  13. ESOMEPRAZOLE MAGNESIUM [Concomitant]
     Active Substance: ESOMEPRAZOLE MAGNESIUM
     Indication: Ulcer
     Dosage: 40 MG TAKE ONE TABLET DAILY
     Route: 048
  14. PREDNISONE [Concomitant]
     Active Substance: PREDNISONE
     Indication: Product used for unknown indication
     Dosage: 5 MG TAKE SIX TABLETS IN THE MORNING
     Route: 048
  15. METOCLOPRAMIDE HYDROCHLORIDE [Concomitant]
     Active Substance: METOCLOPRAMIDE HYDROCHLORIDE
     Indication: Product used for unknown indication
     Dosage: 10 MG TAKE ONE TABLET THREE TIMES A DAY
     Route: 048
  16. Fexo [Concomitant]
     Indication: Hypersensitivity
     Dosage: 120 MG TAKE ONE TABLET TWICE A DAY
     Route: 048
  17. Dulcolax [Concomitant]
     Indication: Product used for unknown indication
  18. Dicloflam [Concomitant]
     Indication: Product used for unknown indication
     Route: 048
  19. DORMONOCT [Concomitant]
     Active Substance: LOPRAZOLAM
     Indication: Insomnia
     Dosage: 2 MG TAKE ONE TABLET AT NIGHT
     Route: 048
  20. BUTYLSCOPOLAMINE BROMIDE [Concomitant]
     Active Substance: BUTYLSCOPOLAMINE BROMIDE
     Indication: Product used for unknown indication
     Dosage: 10 MG TAKE ONE TABLET THREE TIMES A DAY
     Route: 048
  21. ONDANSETRON HYDROCHLORIDE [Concomitant]
     Active Substance: ONDANSETRON HYDROCHLORIDE
     Indication: Product used for unknown indication
     Route: 048
  22. OXYCODONE HYDROCHLORIDE [Concomitant]
     Active Substance: OXYCODONE HYDROCHLORIDE
     Indication: Surgery
     Route: 048
  23. BUPROPION HYDROCHLORIDE [Concomitant]
     Active Substance: BUPROPION HYDROCHLORIDE
     Indication: Depression
     Dosage: 150 MG TAKE ONE TABLET DAILY
     Route: 048
  24. LOPERAMIDE [Concomitant]
     Active Substance: LOPERAMIDE
     Indication: Product used for unknown indication
  25. FENTANYL [Concomitant]
     Active Substance: FENTANYL
     Indication: Pain
     Route: 061
  26. FENTANYL [Concomitant]
     Active Substance: FENTANYL
     Indication: Pain
     Route: 061
  27. FENTANYL [Concomitant]
     Active Substance: FENTANYL
     Indication: Pain
     Route: 061
  28. BUPRENORPHINE [Concomitant]
     Active Substance: BUPRENORPHINE
     Indication: Dependence
     Route: 061

REACTIONS (1)
  - Chemotherapy [Unknown]
